FAERS Safety Report 15557005 (Version 1)
Quarter: 2018Q4

REPORT INFORMATION
  Report Type: Spontaneous
  Country: US (occurrence: US)
  Receive Date: 20181026
  Receipt Date: 20181026
  Transmission Date: 20190205
  Serious: No
  Sender: FDA-Public Use
  Company Number: US-STALLERGENES SAS-2058131

PATIENT
  Sex: Female

DRUGS (8)
  1. AZITHROMYCIN DIHYDRATE. [Concomitant]
     Active Substance: AZITHROMYCIN DIHYDRATE
     Dates: start: 201410
  2. BROMFED DM [Concomitant]
     Active Substance: BROMPHENIRAMINE MALEATE\DEXTROMETHORPHAN HYDROBROMIDE\PSEUDOEPHEDRINE HYDROCHLORIDE
     Dates: start: 201707
  3. ORALAIR [Suspect]
     Active Substance: ANTHOXANTHUM ODORATUM POLLEN\DACTYLIS GLOMERATA POLLEN\LOLIUM PERENNE POLLEN\PHLEUM PRATENSE POLLEN\POA PRATENSIS POLLEN
     Indication: RHINITIS ALLERGIC
     Route: 060
     Dates: start: 2013, end: 2017
  4. PREDNISONE. [Concomitant]
     Active Substance: PREDNISONE
     Dates: start: 2014
  5. DIMYSTA [Concomitant]
     Dates: start: 201404, end: 201602
  6. AZITHROMYCIN DIHYDRATE. [Concomitant]
     Active Substance: AZITHROMYCIN DIHYDRATE
     Dates: start: 201705
  7. CEFUROXIME. [Concomitant]
     Active Substance: CEFUROXIME
     Dates: start: 201707
  8. AZITHROMYCIN DIHYDRATE. [Concomitant]
     Active Substance: AZITHROMYCIN DIHYDRATE
     Dates: start: 201501

REACTIONS (1)
  - Dry eye [Recovered/Resolved]
